FAERS Safety Report 7041655-5 (Version None)
Quarter: 2010Q4

REPORT INFORMATION
  Report Type: 
  Country: None (occurrence: None)
  Receive Date: 20101013
  Receipt Date: 20091219
  Transmission Date: 20110411
  Serious: Yes (Other)
  Sender: FDA-Public Use
  Company Number: US-ASTRAZENECA-2009SE32806

PATIENT
  Age: 37 Year
  Sex: Male

DRUGS (3)
  1. SYMBICORT [Suspect]
     Indication: SEASONAL ALLERGY
     Route: 055
  2. SYMBICORT [Suspect]
     Indication: ASTHMA
     Route: 055
  3. ALBUTEROL [Concomitant]
     Route: 055

REACTIONS (1)
  - ANAPHYLACTIC REACTION [None]
